FAERS Safety Report 4785203-9 (Version None)
Quarter: 2005Q3

REPORT INFORMATION
  Report Type: 
  Country: None (occurrence: None)
  Receive Date: 20050930
  Receipt Date: 20050923
  Transmission Date: 20060218
  Serious: Yes (Other)
  Sender: FDA-Public Use
  Company Number: CH-MERCK-0509CHE00049

PATIENT
  Age: 24 Year
  Sex: Male
  Weight: 72 kg

DRUGS (4)
  1. INDOCIN [Suspect]
     Indication: PAIN
     Route: 048
     Dates: start: 20040716, end: 20040718
  2. ACETAMINOPHEN [Suspect]
     Indication: PAIN
     Route: 048
     Dates: start: 20040101, end: 20040101
  3. ESOMEPRAZOLE MAGNESIUM [Suspect]
     Indication: PROPHYLAXIS
     Route: 048
     Dates: start: 20040101, end: 20040101
  4. GENERAL ANESTHESIA (UNSPECIFIED) [Concomitant]
     Route: 065
     Dates: start: 20040712, end: 20040712

REACTIONS (2)
  - DYSGEUSIA [None]
  - PAROSMIA [None]
